FAERS Safety Report 9299984 (Version 1)
Quarter: 2012Q4

REPORT INFORMATION
  Report Type: Spontaneous
  Country: US (occurrence: None)
  Receive Date: 20121108
  Receipt Date: 20121108
  Transmission Date: 20130627
  Serious: Yes (Hospitalization, Other)
  Sender: FDA-Public Use
  Company Number: DSU-2012-07077

PATIENT
  Age: 76 Year
  Sex: Male
  Weight: 92.99 kg

DRUGS (5)
  1. AZOR (OLMESARTAN MEDOXOMIL, AMLODIPINE BESILATE) (TABLET) (OLMESARTAN MEDOXOMIL, AMLODIPINE BESILATE) [Suspect]
     Indication: HYPERTENSION
     Route: 048
     Dates: start: 201202, end: 20120725
  2. BACTRIM DS [Suspect]
     Indication: BPH
     Route: 048
     Dates: start: 20120701, end: 20120725
  3. BACTRIM DS [Suspect]
     Indication: PROSTATITIS
     Route: 048
     Dates: start: 20120701, end: 20120725
  4. ATENOLOL-CHLORTALIDONE (CHLORTALIDONE, ATENOLOL) [Concomitant]
  5. DOXAZOSIN (DOXAZOSIN) [Concomitant]

REACTIONS (10)
  - Blood potassium increased [None]
  - Blood creatinine increased [None]
  - Blood urea increased [None]
  - Renal disorder [None]
  - Fatigue [None]
  - Nausea [None]
  - Vomiting [None]
  - Gastrooesophageal reflux disease [None]
  - Gout [None]
  - Obstruction [None]
